FAERS Safety Report 7958356-9 (Version None)
Quarter: 2011Q4

REPORT INFORMATION
  Report Type: 
  Country: None (occurrence: None)
  Receive Date: 20111205
  Receipt Date: 20111130
  Transmission Date: 20120403
  Serious: Yes (Hospitalization)
  Sender: FDA-Public Use
  Company Number: US-ROCHE-1017748

PATIENT

DRUGS (1)
  1. ACTIVASE [Suspect]
     Indication: UNEVALUABLE EVENT

REACTIONS (1)
  - CARDIAC DISORDER [None]
